FAERS Safety Report 8186803-9 (Version None)
Quarter: 2012Q1

REPORT INFORMATION
  Report Type: 
  Country: None (occurrence: None)
  Receive Date: 20120306
  Receipt Date: 20120301
  Transmission Date: 20120608
  Serious: Yes (Death, Other)
  Sender: FDA-Public Use
  Company Number: US-BRISTOL-MYERS SQUIBB COMPANY-16428609

PATIENT
  Age: 70 Year
  Sex: Female
  Weight: 45 kg

DRUGS (1)
  1. ORENCIA [Suspect]
     Dosage: LAST INFUSION IN DEC2011
     Dates: start: 20080401

REACTIONS (2)
  - HEADACHE [None]
  - METASTATIC NEOPLASM [None]
